FAERS Safety Report 8093400-2 (Version None)
Quarter: 2012Q1

REPORT INFORMATION
  Report Type: 
  Country: None (occurrence: None)
  Receive Date: 20120131
  Receipt Date: 20120126
  Transmission Date: 20120608
  Serious: Yes (Other)
  Sender: FDA-Public Use
  Company Number: US-PFIZER INC-2012022413

PATIENT
  Sex: Female
  Weight: 51.247 kg

DRUGS (6)
  1. SULFASALAZINE [Concomitant]
     Indication: CROHN'S DISEASE
     Dosage: 1000 MG, 4X/DAY
     Route: 048
  2. ADVAIR DISKUS 100/50 [Concomitant]
     Indication: ASTHMA
     Dosage: UNK
  3. ZANTAC [Concomitant]
     Indication: ABDOMINAL DISCOMFORT
     Dosage: 150 MG, UNK
  4. SERTRALINE HYDROCHLORIDE [Suspect]
     Indication: DEPRESSION
     Dosage: 100 MG, 1X/DAY
     Route: 048
     Dates: start: 20120119, end: 20120122
  5. PREDNISOLONE [Concomitant]
     Indication: CROHN'S DISEASE
     Dosage: 40 MG, UNK
  6. ZOLOFT [Suspect]
     Indication: DEPRESSION
     Dosage: 100 MG, 1X/DAY
     Route: 048
     Dates: start: 20110601, end: 20110601

REACTIONS (16)
  - DYSGEUSIA [None]
  - BURNING SENSATION [None]
  - ORAL DISCOMFORT [None]
  - DEPRESSION [None]
  - SOMNOLENCE [None]
  - HEADACHE [None]
  - FEELING HOT [None]
  - FEELING ABNORMAL [None]
  - INSOMNIA [None]
  - MALAISE [None]
  - VOMITING [None]
  - CRYING [None]
  - APHAGIA [None]
  - TRICHOTILLOMANIA [None]
  - HYPOAESTHESIA ORAL [None]
  - THROAT IRRITATION [None]
